FAERS Safety Report 4498585-2 (Version None)
Quarter: 2004Q4

REPORT INFORMATION
  Report Type: 
  Country: None (occurrence: None)
  Receive Date: 20041026
  Receipt Date: 20041026
  Transmission Date: 20050328
  Serious: Yes (Hospitalization)
  Sender: FDA-Public Use
  Company Number: None

PATIENT
  Age: 33 Year
  Sex: Female
  Weight: 79 kg

DRUGS (6)
  1. TREPROSTINIL SODIUM 600 MCG/ML [Suspect]
     Indication: PULMONARY HYPERTENSION
     Dosage: 15 MCG QID, INHALED
     Route: 055
     Dates: start: 20041007
  2. NORVASC [Concomitant]
  3. TRACLEER [Concomitant]
  4. POTASSIUM [Concomitant]
  5. COUMADIN [Concomitant]
  6. LASIX [Concomitant]

REACTIONS (2)
  - BLINDNESS UNILATERAL [None]
  - VISION BLURRED [None]
